FAERS Safety Report 15295621 (Version 4)
Quarter: 2019Q4

REPORT INFORMATION
  Report Type: Spontaneous
  Country: US (occurrence: US)
  Receive Date: 20180820
  Receipt Date: 20191018
  Transmission Date: 20200122
  Serious: Yes (Other)
  Sender: FDA-Public Use
  Company Number: US-SA-2018SA227493

PATIENT
  Age: 61 Year
  Sex: Female

DRUGS (2)
  1. AUBAGIO [Suspect]
     Active Substance: TERIFLUNOMIDE
     Indication: MULTIPLE SCLEROSIS
     Dosage: 14 MG, QD
     Route: 048
     Dates: start: 20180523
  2. AUBAGIO [Suspect]
     Active Substance: TERIFLUNOMIDE
     Dosage: 14 MG, QD
     Route: 048
     Dates: start: 201810

REACTIONS (3)
  - Fall [Unknown]
  - Multiple sclerosis [Unknown]
  - Fall [Unknown]

NARRATIVE: CASE EVENT DATE: 20190727
